FAERS Safety Report 12700818 (Version 1)
Quarter: 2016Q3

REPORT INFORMATION
  Report Type: Spontaneous
  Country: GB (occurrence: GB)
  Receive Date: 20160830
  Receipt Date: 20160830
  Transmission Date: 20161109
  Serious: Yes (Other)
  Sender: FDA-Public Use
  Company Number: GB-INTERNATIONAL MEDICATION SYSTEMS, LIMITED-1056897

PATIENT
  Age: 78 Year

DRUGS (4)
  1. METARAMINOL [Suspect]
     Active Substance: METARAMINOL
  2. DEXTROSE. [Suspect]
     Active Substance: DEXTROSE
  3. CALCIUM GLUCONATE. [Suspect]
     Active Substance: CALCIUM GLUCONATE
  4. ADRENALINE [Suspect]
     Active Substance: EPINEPHRINE
     Indication: RESUSCITATION

REACTIONS (2)
  - Catheter site extravasation [Unknown]
  - Limb injury [Unknown]

NARRATIVE: CASE EVENT DATE: 20160314
